FAERS Safety Report 17553098 (Version 1)
Quarter: 2020Q1

REPORT INFORMATION
  Report Type: Spontaneous
  Country: NL (occurrence: NL)
  Receive Date: 20200317
  Receipt Date: 20200317
  Transmission Date: 20200409
  Serious: Yes (Death, Life-Threatening)
  Sender: FDA-Public Use
  Company Number: NVSC2020NL075215

PATIENT
  Age: 46 Year
  Sex: Female
  Weight: 70 kg

DRUGS (23)
  1. FLUDARABINE PHOSPHATE. [Suspect]
     Active Substance: FLUDARABINE PHOSPHATE
     Indication: HAEMATOLOGICAL MALIGNANCY
     Dosage: 1 DF  INJECTIE/INFUUS, 1 MG/MG (MILLIGRAM PER MILLIGRAM), , 2X KUUR (2016, 2019)
     Route: 065
     Dates: start: 20191121, end: 20191125
  2. TEMAZEPAM. [Concomitant]
     Active Substance: TEMAZEPAM
     Indication: PRODUCT USED FOR UNKNOWN INDICATION
     Dosage: 10 MG, QD
     Route: 048
     Dates: start: 20191122, end: 20191128
  3. SPIRONOLACTON [Concomitant]
     Active Substance: SPIRONOLACTONE
     Indication: PRODUCT USED FOR UNKNOWN INDICATION
     Dosage: 25 MG, Q12H
     Route: 065
     Dates: start: 20191127, end: 20191127
  4. FLUCONAZOL [Concomitant]
     Active Substance: FLUCONAZOLE
     Dosage: UNK
     Route: 065
  5. PANTOPRAZOLE [Concomitant]
     Active Substance: PANTOPRAZOLE
     Indication: PRODUCT USED FOR UNKNOWN INDICATION
     Dosage: 40 MG, QD
     Route: 048
     Dates: start: 20191112, end: 20191128
  6. PREDNISONE. [Concomitant]
     Active Substance: PREDNISONE
     Indication: PRODUCT USED FOR UNKNOWN INDICATION
     Dosage: 65 MG, QD
     Route: 065
     Dates: start: 20191127
  7. BISOPROLOL [Concomitant]
     Active Substance: BISOPROLOL
     Indication: PRODUCT USED FOR UNKNOWN INDICATION
     Dosage: 3 MG, Q12H (2 DD 3,75 MG)
     Route: 065
  8. MEROPENEM. [Concomitant]
     Active Substance: MEROPENEM
     Indication: PRODUCT USED FOR UNKNOWN INDICATION
     Dosage: 1000 MG, Q12H  2 X PER DAAG 1000 MG
     Route: 065
     Dates: start: 20191127, end: 20191127
  9. NATRIUM [Concomitant]
     Indication: PRODUCT USED FOR UNKNOWN INDICATION
     Dosage: 1 DF 83,33 ML/UUR (TOEDIENING 83,333 ML/UUR VOLTOOD/LEEG)
     Route: 065
     Dates: start: 20191126, end: 20191127
  10. NATRIUM CHLORIDUM [Concomitant]
     Active Substance: SODIUM CHLORIDE
     Indication: PRODUCT USED FOR UNKNOWN INDICATION
     Dosage: 1 DF 1000 ML START TOEDIENING 3 UUR VOOR CORDBLOOD SCT OP LUMEN BLAUW INLOOPTIJD 3 UUR
     Route: 065
     Dates: start: 20191127, end: 20191128
  11. CICLOSPORIN [Concomitant]
     Active Substance: CYCLOSPORINE
     Indication: PRODUCT USED FOR UNKNOWN INDICATION
     Dosage: 100 MG, Q12H  2 X PER DAG 100 MG
     Route: 042
     Dates: start: 20191126, end: 20191128
  12. METOCLOPRAMIDE. [Concomitant]
     Active Substance: METOCLOPRAMIDE
     Indication: PRODUCT USED FOR UNKNOWN INDICATION
     Dosage: UNK
     Route: 048
     Dates: start: 20191126, end: 20191128
  13. CIPROFLOXACIN. [Concomitant]
     Active Substance: CIPROFLOXACIN
     Indication: PRODUCT USED FOR UNKNOWN INDICATION
     Dosage: 500 MG, Q12H
     Route: 048
     Dates: start: 20191119, end: 20191128
  14. HEPARIN [Concomitant]
     Active Substance: HEPARIN SODIUM
     Indication: PRODUCT USED FOR UNKNOWN INDICATION
     Dosage: 200 IU, QD  1X PER DAG 200  IE
     Route: 042
     Dates: start: 20191113, end: 20191204
  15. GRANISETRON [Concomitant]
     Active Substance: GRANISETRON
     Indication: PRODUCT USED FOR UNKNOWN INDICATION
     Dosage: UNK
     Route: 042
     Dates: start: 20191125, end: 20191127
  16. FENTANYL. [Concomitant]
     Active Substance: FENTANYL
     Indication: PRODUCT USED FOR UNKNOWN INDICATION
     Dosage: 1 DF 1 X PER 3 DAGEN 12 MCG
     Route: 062
     Dates: start: 20191117, end: 20191128
  17. COLISTIN [Concomitant]
     Active Substance: COLISTIN
     Indication: PRODUCT USED FOR UNKNOWN INDICATION
     Dosage: 200 MG, Q6H  (4 DD 200 MG)
     Route: 048
     Dates: start: 20191119, end: 20191129
  18. FLUCONAZOL [Concomitant]
     Active Substance: FLUCONAZOLE
     Indication: PRODUCT USED FOR UNKNOWN INDICATION
     Dosage: 200 MG, QD  1 DD 200 MG
     Route: 048
     Dates: start: 20191126, end: 20191128
  19. LOPERAMIDE [Concomitant]
     Active Substance: LOPERAMIDE
     Indication: PRODUCT USED FOR UNKNOWN INDICATION
     Dosage: 2 MG  2 MG  ZN 4 DD 2 MG, VERVOLGENS ZOLANG DIARREE AAANHOUDT 2 MG NA ELLKE DAAROPVOLGENDE  DUNNE ON
     Route: 065
     Dates: start: 20191125, end: 20191128
  20. MACROGOL [Concomitant]
     Active Substance: POLYETHYLENE GLYCOLS
     Indication: PRODUCT USED FOR UNKNOWN INDICATION
     Dosage: 1 DF, QD  1 DD 1
     Route: 048
     Dates: start: 20191118, end: 20191128
  21. BENCILPENICILINA [Concomitant]
     Indication: PRODUCT USED FOR UNKNOWN INDICATION
     Dosage: 1000000 MIU, Q4H  6 X PER DAG 1000000 IE
     Route: 065
     Dates: start: 20191127, end: 20191208
  22. FLUCONAZOL [Concomitant]
     Active Substance: FLUCONAZOLE
     Dosage: UNK
     Route: 065
     Dates: start: 20191128, end: 20191205
  23. LANTUS [Concomitant]
     Active Substance: INSULIN GLARGINE
     Indication: PRODUCT USED FOR UNKNOWN INDICATION
     Dosage: 22 IU, QD  1 DD 22 EENHEID
     Route: 058
     Dates: start: 20191126, end: 20191214

REACTIONS (1)
  - Toxic leukoencephalopathy [Fatal]

NARRATIVE: CASE EVENT DATE: 20191127
